FAERS Safety Report 15506873 (Version 1)
Quarter: 2018Q4

REPORT INFORMATION
  Report Type: Spontaneous
  Country: US (occurrence: US)
  Receive Date: 20181016
  Receipt Date: 20181016
  Transmission Date: 20190205
  Serious: No
  Sender: FDA-Public Use
  Company Number: US-MYLANLABS-2018M1070816

PATIENT
  Age: 93 Year
  Sex: Female
  Weight: 57 kg

DRUGS (1)
  1. ESTRADIOL. [Suspect]
     Active Substance: ESTRADIOL
     Indication: VULVOVAGINAL ERYTHEMA
     Dosage: THREE TIMES WEEKLY FOR A MONTH
     Route: 067
     Dates: start: 20180821, end: 20180919

REACTIONS (3)
  - Burning sensation [Recovered/Resolved]
  - Oral discomfort [Recovered/Resolved]
  - Vulvovaginal burning sensation [Not Recovered/Not Resolved]

NARRATIVE: CASE EVENT DATE: 20180821
